FAERS Safety Report 25241501 (Version 1)
Quarter: 2025Q2

REPORT INFORMATION
  Report Type: Report from Study
  Country: US (occurrence: US)
  Receive Date: 20250426
  Receipt Date: 20250426
  Transmission Date: 20250717
  Serious: Yes (Other)
  Sender: ABBVIE
  Company Number: US-ABBVIE-6247402

PATIENT
  Age: 56 Year
  Sex: Male

DRUGS (1)
  1. SKYRIZI [Suspect]
     Active Substance: RISANKIZUMAB-RZAA
     Indication: Colitis ulcerative
     Route: 058
     Dates: start: 202501

REACTIONS (4)
  - Oral surgery [Unknown]
  - Device issue [Not Recovered/Not Resolved]
  - Injection site discharge [Not Recovered/Not Resolved]
  - Therapeutic product effect incomplete [Unknown]

NARRATIVE: CASE EVENT DATE: 20250101
